FAERS Safety Report 4467908-2 (Version None)
Quarter: 2004Q4

REPORT INFORMATION
  Report Type: 
  Country: None (occurrence: None)
  Receive Date: 20041001
  Receipt Date: 20040914
  Transmission Date: 20050328
  Serious: Yes (Hospitalization)
  Sender: FDA-Public Use
  Company Number: WAES 0409ESP00004

PATIENT
  Age: 79 Year
  Sex: Male

DRUGS (8)
  1. COZAAR [Suspect]
     Indication: CARDIAC FAILURE
     Route: 048
     Dates: start: 20031106, end: 20040908
  2. METHYLPREDNISOLONE [Suspect]
     Indication: RESPIRATORY FAILURE
     Dosage: 40 MG/DAILY
     Route: 042
     Dates: start: 20040906
  3. SINTROM [Concomitant]
  4. AMIODARONE [Concomitant]
  5. LORMETAZEPAM [Concomitant]
  6. NITROGLYCERIN [Concomitant]
  7. PRAVASTATIN SODIUM [Concomitant]
  8. TORSEMIDE [Concomitant]

REACTIONS (11)
  - CARDIAC FAILURE [None]
  - CHILLS [None]
  - DIABETES MELLITUS [None]
  - DYSPNOEA [None]
  - HYPOTENSION [None]
  - INTERNATIONAL NORMALISED RATIO INCREASED [None]
  - LIVER DISORDER [None]
  - LUNG NEOPLASM [None]
  - OVERDOSE [None]
  - RENAL FAILURE [None]
  - RESPIRATORY FAILURE [None]
